FAERS Safety Report 8901334 (Version 6)
Quarter: 2012Q4

REPORT INFORMATION
  Report Type: 
  Country: UY (occurrence: UY)
  Receive Date: 20121109
  Receipt Date: 20121218
  Transmission Date: 20130627
  Serious: Yes (Hospitalization, Other)
  Sender: FDA-Public Use
  Company Number: UY-ABBOTT-12P-168-1002791-00

PATIENT
  Age: 59 Year
  Sex: Female

DRUGS (3)
  1. HUMIRA [Suspect]
     Indication: ANKYLOSING SPONDYLITIS
     Route: 058
     Dates: start: 20101029, end: 20121016
  2. METHOTREXATE [Concomitant]
     Indication: ANKYLOSING SPONDYLITIS
     Dosage: Once a week
  3. UNKNOWN MEDICATION FOR CHOLESTEROL [Concomitant]
     Indication: BLOOD CHOLESTEROL

REACTIONS (8)
  - Herpes zoster [Recovered/Resolved]
  - Psoriasis [Not Recovered/Not Resolved]
  - Pyrexia [Recovered/Resolved]
  - Diarrhoea [Recovered/Resolved]
  - Vomiting [Recovered/Resolved]
  - Psoriasis [Unknown]
  - Fatigue [Not Recovered/Not Resolved]
  - Scar [Not Recovered/Not Resolved]
